FAERS Safety Report 25927831 (Version 1)
Quarter: 2025Q4

REPORT INFORMATION
  Report Type: Spontaneous
  Country: JP (occurrence: JP)
  Receive Date: 20251016
  Receipt Date: 20251016
  Transmission Date: 20260119
  Serious: Yes (Life-Threatening, Hospitalization, Other)
  Sender: SOLARIS PHARMA CORPORATION
  Company Number: JP-SPC-000728

PATIENT
  Age: 64 Year
  Sex: Male

DRUGS (4)
  1. METRONIDAZOLE [Suspect]
     Active Substance: METRONIDAZOLE
     Indication: Liver abscess
     Route: 065
  2. PIPERACILLIN SODIUM\TAZOBACTAM SODIUM [Suspect]
     Active Substance: PIPERACILLIN SODIUM\TAZOBACTAM SODIUM
     Indication: Liver abscess
     Route: 065
  3. MEROPENEM [Suspect]
     Active Substance: MEROPENEM
     Indication: Bacterial infection
     Route: 065
  4. DAPTOMYCIN [Suspect]
     Active Substance: DAPTOMYCIN
     Indication: Bacterial infection
     Route: 065

REACTIONS (6)
  - Respiratory failure [Recovered/Resolved]
  - Condition aggravated [Recovering/Resolving]
  - Hepatic haemorrhage [Recovering/Resolving]
  - Hepatic amoebiasis [Recovering/Resolving]
  - Product use in unapproved indication [Unknown]
  - Hepatic function abnormal [Recovering/Resolving]
